FAERS Safety Report 9540672 (Version 2)
Quarter: 2013Q4

REPORT INFORMATION
  Report Type: Spontaneous
  Country: US (occurrence: US)
  Receive Date: 20130920
  Receipt Date: 20131114
  Transmission Date: 20140711
  Serious: Yes (Death, Hospitalization)
  Sender: FDA-Public Use
  Company Number: US-B.I. PHARMACEUTICALS,INC./RIDGEFIELD-2013-BI-28922BP

PATIENT
  Sex: Female
  Weight: 122.47 kg

DRUGS (10)
  1. PRADAXA [Suspect]
     Indication: ATRIAL FIBRILLATION
     Dosage: 300 MG
     Dates: end: 20130520
  2. ASPIRIN [Concomitant]
     Dosage: 81 MG
  3. CIPRO [Concomitant]
     Dosage: 1000 MG
  4. CELEXA [Concomitant]
     Dosage: 20 MG
     Dates: start: 201302
  5. DIGOXIN [Concomitant]
     Dosage: 125 MCG
  6. MAG-OXIDE [Concomitant]
     Dates: start: 201212
  7. METOPROLOL [Concomitant]
     Dosage: 25 MG
  8. RISPERDAL [Concomitant]
  9. ZOCOR [Concomitant]
     Dosage: 10 MG
  10. TYLENOL [Concomitant]

REACTIONS (7)
  - Upper gastrointestinal haemorrhage [Fatal]
  - Respiratory failure [Fatal]
  - Haemorrhagic anaemia [Unknown]
  - Mental status changes [Unknown]
  - Haematuria [Unknown]
  - Coagulopathy [Unknown]
  - Contusion [Unknown]
